FAERS Safety Report 13033546 (Version 1)
Quarter: 2016Q4

REPORT INFORMATION
  Report Type: Spontaneous
  Country: TW (occurrence: TW)
  Receive Date: 20161216
  Receipt Date: 20161216
  Transmission Date: 20170207
  Serious: Yes (Death)
  Sender: FDA-Public Use
  Company Number: TW-ROCHE-1867210

PATIENT
  Age: 67 Year
  Sex: Female

DRUGS (21)
  1. ETORICOXIB [Concomitant]
     Active Substance: ETORICOXIB
     Route: 065
     Dates: start: 201307, end: 20140714
  2. FENTANYL. [Concomitant]
     Active Substance: FENTANYL
     Route: 065
     Dates: start: 201307, end: 20150714
  3. AUGMENTIN [Concomitant]
     Active Substance: AMOXICILLIN\CLAVULANATE POTASSIUM
     Route: 065
     Dates: start: 201307, end: 20140714
  4. MOSAPRIDE [Concomitant]
     Active Substance: MOSAPRIDE
     Route: 065
     Dates: start: 201307, end: 20140714
  5. SOLU-CORTEF INJECTABLE [Concomitant]
     Route: 065
     Dates: start: 201307, end: 20150714
  6. NEXIUM [Concomitant]
     Active Substance: ESOMEPRAZOLE MAGNESIUM
     Route: 065
     Dates: start: 201307, end: 20150714
  7. PETHIDINE [Concomitant]
     Active Substance: MEPERIDINE
     Route: 065
     Dates: start: 201307, end: 20140714
  8. ADRENALINE [Concomitant]
     Active Substance: EPINEPHRINE
     Route: 065
     Dates: start: 201307, end: 20150714
  9. FENTANYL. [Concomitant]
     Active Substance: FENTANYL
     Route: 065
     Dates: start: 201307, end: 20150714
  10. MIDAZOLAM [Concomitant]
     Active Substance: MIDAZOLAM\MIDAZOLAM HYDROCHLORIDE
     Route: 065
     Dates: start: 201307, end: 20150714
  11. LEVOPHED [Concomitant]
     Active Substance: NOREPINEPHRINE BITARTRATE
     Route: 065
     Dates: start: 201307, end: 20150714
  12. FUROSEMIDE. [Concomitant]
     Active Substance: FUROSEMIDE
     Route: 065
     Dates: start: 201307, end: 20140714
  13. TRAMADOL. [Concomitant]
     Active Substance: TRAMADOL
     Route: 065
     Dates: start: 201307, end: 20140714
  14. OXACILLIN [Concomitant]
     Active Substance: OXACILLIN SODIUM
     Route: 065
     Dates: start: 201307, end: 20140713
  15. ACTEMRA [Suspect]
     Active Substance: TOCILIZUMAB
     Indication: RHEUMATOID ARTHRITIS
     Route: 042
  16. TAZOCIN [Concomitant]
     Active Substance: PIPERACILLIN SODIUM\TAZOBACTAM SODIUM
     Route: 065
     Dates: start: 201307, end: 20150714
  17. ULTRACET [Concomitant]
     Active Substance: ACETAMINOPHEN\TRAMADOL HYDROCHLORIDE
     Route: 065
     Dates: start: 201307, end: 20140714
  18. TRYNOL [Concomitant]
     Route: 065
     Dates: start: 201307, end: 20140714
  19. MALONETTA [Concomitant]
     Active Substance: ETHINYL ESTRADIOL\LEVONORGESTREL
     Route: 065
     Dates: start: 201307, end: 20140713
  20. PANTOPRAZOLE [Concomitant]
     Active Substance: PANTOPRAZOLE SODIUM
     Route: 065
     Dates: start: 201307, end: 20140713
  21. EXACIN [Concomitant]
     Active Substance: ISEPAMICIN
     Route: 065
     Dates: start: 201307, end: 20150714

REACTIONS (1)
  - Endotheliomatosis [Fatal]
